FAERS Safety Report 6349992-4 (Version None)
Quarter: 2009Q3

REPORT INFORMATION
  Report Type: 
  Country: None (occurrence: None)
  Receive Date: 20090911
  Receipt Date: 20090622
  Transmission Date: 20100115
  Serious: No
  Sender: FDA-Public Use
  Company Number: US-ABBOTT-06P-163-0348194-00

PATIENT
  Sex: Male
  Weight: 79.45 kg

DRUGS (3)
  1. HUMIRA [Suspect]
     Indication: RHEUMATOID ARTHRITIS
     Route: 058
     Dates: start: 20061017
  2. PREDNISONE [Concomitant]
     Indication: ARTHRITIS
     Route: 048
  3. METHOTREXATE [Concomitant]
     Indication: ARTHRITIS
     Route: 048

REACTIONS (2)
  - INCORRECT DOSE ADMINISTERED [None]
  - INJECTION SITE EXTRAVASATION [None]
